FAERS Safety Report 7937859-7 (Version None)
Quarter: 2011Q4

REPORT INFORMATION
  Report Type: 
  Country: None (occurrence: None)
  Receive Date: 20111123
  Receipt Date: 20111118
  Transmission Date: 20120403
  Serious: Yes (Hospitalization, Other)
  Sender: FDA-Public Use
  Company Number: US-JNJFOC-20110410492

PATIENT
  Sex: Female
  Weight: 68.04 kg

DRUGS (2)
  1. LEVAQUIN [Suspect]
     Indication: UPPER RESPIRATORY TRACT INFECTION
     Route: 048
     Dates: start: 20090201
  2. METHYLPREDNISOLONE [Suspect]
     Indication: MUSCLE STRAIN
     Route: 065

REACTIONS (4)
  - ROTATOR CUFF SYNDROME [None]
  - ANKLE FRACTURE [None]
  - TENDON RUPTURE [None]
  - SCAPULA FRACTURE [None]
